FAERS Safety Report 6124095-2 (Version None)
Quarter: 2009Q1

REPORT INFORMATION
  Report Type: 
  Country: None (occurrence: None)
  Receive Date: 20090318
  Receipt Date: 20090318
  Transmission Date: 20090719
  Serious: No
  Sender: FDA-Public Use
  Company Number: None

PATIENT
  Age: 54 Year
  Sex: Female
  Weight: 93.8946 kg

DRUGS (2)
  1. MUCINEX DM [Suspect]
     Indication: COUGH
     Dosage: 1 TABLET ONCE IN 24 HOURS PO
     Route: 048
     Dates: start: 20090315, end: 20090317
  2. MUCINEX DM [Suspect]
     Indication: NASOPHARYNGITIS
     Dosage: 1 TABLET ONCE IN 24 HOURS PO
     Route: 048
     Dates: start: 20090315, end: 20090317

REACTIONS (5)
  - DEPRESSION [None]
  - FEELING ABNORMAL [None]
  - INSOMNIA [None]
  - IRRITABILITY [None]
  - PALPITATIONS [None]
